FAERS Safety Report 5711888-6 (Version None)
Quarter: 2008Q2

REPORT INFORMATION
  Report Type: 
  Country: None (occurrence: None)
  Receive Date: 20080421
  Receipt Date: 20080325
  Transmission Date: 20081010
  Serious: No
  Sender: FDA-Public Use
  Company Number: US-BOEHRINGER INGELHEIM GMBH, GERMANY-2008-BP-04606BP

PATIENT
  Sex: Female

DRUGS (4)
  1. COMBIVENT [Suspect]
     Indication: PNEUMONIA
     Route: 055
     Dates: start: 20080324
  2. PREDNISONE [Concomitant]
     Indication: DYSPNOEA
     Dates: start: 20080324
  3. LEVOFLOXACIN [Concomitant]
     Indication: PNEUMONIA
     Dates: start: 20080324
  4. B/P MEDS [Concomitant]

REACTIONS (1)
  - INSOMNIA [None]
